FAERS Safety Report 5446017-X (Version None)
Quarter: 2007Q3

REPORT INFORMATION
  Report Type: 
  Country: None (occurrence: None)
  Receive Date: 20070907
  Receipt Date: 20070216
  Transmission Date: 20080115
  Serious: Yes (Disabling)
  Sender: FDA-Public Use
  Company Number: CA-NOVOPROD-254633

PATIENT
  Age: 17 Year
  Sex: Female
  Weight: 70 kg

DRUGS (8)
  1. NIASTASE [Suspect]
     Indication: SURGERY
     Dosage: 3.6 MG, UNK
     Route: 042
  2. HEPARIN [Concomitant]
  3. PROTAMINE SULFATE [Concomitant]
  4. NIPRIDE [Concomitant]
  5. CRYOPRECIPITATES [Concomitant]
  6. FRESH FROZEN PLASMA [Concomitant]
  7. RED BLOOD CELLS [Concomitant]
  8. PLATELETS [Concomitant]

REACTIONS (3)
  - PARAPLEGIA [None]
  - SPINAL CORD INJURY [None]
  - THROMBOSIS [None]
